FAERS Safety Report 7590602-6 (Version None)
Quarter: 2011Q3

REPORT INFORMATION
  Report Type: 
  Country: None (occurrence: None)
  Receive Date: 20110705
  Receipt Date: 20110628
  Transmission Date: 20111222
  Serious: Yes (Death, Other)
  Sender: FDA-Public Use
  Company Number: VE-PFIZER INC-2011138236

PATIENT
  Age: 66 Year
  Sex: Male

DRUGS (1)
  1. LIPITOR [Suspect]
     Indication: MITRAL VALVE DISEASE
     Dosage: UNK
     Route: 048
     Dates: start: 20101126

REACTIONS (2)
  - ISCHAEMIC CEREBRAL INFARCTION [None]
  - MITRAL VALVE REPAIR [None]
